FAERS Safety Report 8991406 (Version 1)
Quarter: 2012Q4

REPORT INFORMATION
  Report Type: Report from Study
  Country: DE (occurrence: US)
  Receive Date: 20121229
  Receipt Date: 20121229
  Transmission Date: 20130627
  Serious: No
  Sender: FDA-Public Use
  Company Number: DE-009507513-1212USA010993

PATIENT
  Sex: Female

DRUGS (1)
  1. ETONOGESTREL IMPLANT- IMPLANON NEXT [Suspect]
     Dosage: 1 DF, UNK
     Dates: start: 20121025

REACTIONS (2)
  - Complication of device insertion [Unknown]
  - No adverse event [Unknown]
